FAERS Safety Report 9636947 (Version 1)
Quarter: 2013Q4

REPORT INFORMATION
  Report Type: Spontaneous
  Country: US (occurrence: US)
  Receive Date: 20131022
  Receipt Date: 20131022
  Transmission Date: 20140711
  Serious: No
  Sender: FDA-Public Use
  Company Number: US-B.I. PHARMACEUTICALS,INC./RIDGEFIELD-2013-BI-32020BP

PATIENT
  Sex: Female

DRUGS (3)
  1. ATROVENT INHALATION SOLUTION [Suspect]
     Indication: COUGH
     Route: 055
     Dates: start: 2007
  2. ATENOLOL [Concomitant]
     Indication: ARRHYTHMIA
     Dosage: 50 MG
     Route: 048
     Dates: start: 1993
  3. HYDROCHLOROTHIAZIDE [Concomitant]
     Indication: HYPERTENSION
     Dosage: 12.5 MG
     Route: 048
     Dates: start: 1993

REACTIONS (3)
  - Rhinorrhoea [Recovered/Resolved]
  - Productive cough [Recovered/Resolved]
  - Off label use [Not Recovered/Not Resolved]
